FAERS Safety Report 9757315 (Version 3)
Quarter: 2014Q1

REPORT INFORMATION
  Report Type: Report from Study
  Country: US (occurrence: US)
  Receive Date: 20131214
  Receipt Date: 20140324
  Transmission Date: 20141002
  Serious: Yes (Hospitalization)
  Sender: FDA-Public Use
  Company Number: US-009507513-0606USA05066

PATIENT
  Age: 66 Year
  Sex: Male
  Weight: 76.66 kg

DRUGS (9)
  1. BLINDED EZETIMIBE (+) SIMVASTATIN [Suspect]
     Indication: ACUTE CORONARY SYNDROME
     Dosage: UNK
     Route: 048
     Dates: start: 20060616, end: 20060617
  2. BLINDED EZETIMIBE (+) SIMVASTATIN [Suspect]
     Dosage: UNK
     Route: 048
     Dates: start: 20060628
  3. BLINDED THERAPY [Suspect]
     Indication: ACUTE CORONARY SYNDROME
     Dosage: UNK
     Route: 048
     Dates: start: 20060616, end: 20060617
  4. BLINDED THERAPY [Suspect]
     Dosage: UNK
     Route: 048
     Dates: start: 20060628
  5. TOPROL XL TABLETS [Suspect]
     Dosage: 50 MG DAILY
     Route: 048
     Dates: start: 20060611, end: 20060627
  6. LISINOPRIL [Suspect]
     Dosage: 5 MG DAILY
     Route: 048
     Dates: start: 20060611, end: 20060627
  7. ASPIRIN [Concomitant]
     Dosage: 81 MG DAILY
     Route: 048
     Dates: start: 20060611
  8. NEXIUM [Concomitant]
     Dosage: 40 MG DAILY
     Route: 048
     Dates: start: 20060611, end: 20060617
  9. PLAVIX [Concomitant]
     Dosage: 75 MG, DAILY
     Route: 048
     Dates: start: 20060611

REACTIONS (1)
  - Dizziness [Recovered/Resolved]
